FAERS Safety Report 16096080 (Version 1)
Quarter: 2019Q1

REPORT INFORMATION
  Report Type: Spontaneous
  Country: US (occurrence: US)
  Receive Date: 20190320
  Receipt Date: 20190320
  Transmission Date: 20190418
  Serious: No
  Sender: FDA-Public Use
  Company Number: US-SA-2019SA075611

PATIENT
  Age: 66 Year
  Sex: Female

DRUGS (1)
  1. DUPIXENT [Suspect]
     Active Substance: DUPILUMAB
     Indication: DERMATITIS ATOPIC
     Dosage: 300 MG, QOW
     Route: 058
     Dates: start: 20180404, end: 201901

REACTIONS (5)
  - Impaired healing [Not Recovered/Not Resolved]
  - Eye pruritus [Not Recovered/Not Resolved]
  - Loss of personal independence in daily activities [Not Recovered/Not Resolved]
  - Lip dry [Not Recovered/Not Resolved]
  - Conjunctivitis [Not Recovered/Not Resolved]
